FAERS Safety Report 6823139-X (Version None)
Quarter: 2010Q3

REPORT INFORMATION
  Report Type: 
  Country: None (occurrence: None)
  Receive Date: 20100708
  Receipt Date: 20100628
  Transmission Date: 20110219
  Serious: Yes (Death)
  Sender: FDA-Public Use
  Company Number: JP-BRISTOL-MYERS SQUIBB COMPANY-15179609

PATIENT
  Age: 44 Year
  Sex: Female

DRUGS (3)
  1. ABILIFY [Suspect]
     Dosage: STRENGTH = 6MG
     Route: 048
     Dates: start: 20100615, end: 20100626
  2. MYSLEE [Concomitant]
     Dosage: TAB
     Dates: end: 20100626
  3. LULLAN [Concomitant]

REACTIONS (1)
  - SUDDEN DEATH [None]
